FAERS Safety Report 5873981-7 (Version None)
Quarter: 2008Q3

REPORT INFORMATION
  Report Type: 
  Country: None (occurrence: None)
  Receive Date: 20080908
  Receipt Date: 20080826
  Transmission Date: 20090109
  Serious: Yes (Death, Hospitalization)
  Sender: FDA-Public Use
  Company Number: US-MERCK-0808USA05151

PATIENT
  Age: 38 Year
  Sex: Female

DRUGS (10)
  1. PRIMAXIN [Suspect]
     Indication: PSEUDOMONAS INFECTION
     Route: 065
  2. PRIMAXIN [Suspect]
     Indication: BACTERAEMIA
     Route: 065
  3. POLYMYXIN B SULFATE [Concomitant]
     Indication: PSEUDOMONAS INFECTION
     Route: 042
  4. POLYMYXIN B SULFATE [Concomitant]
     Indication: BACTERAEMIA
     Route: 042
  5. AZITHROMYCIN [Concomitant]
     Indication: PSEUDOMONAS INFECTION
     Route: 065
  6. AZITHROMYCIN [Concomitant]
     Indication: BACTERAEMIA
     Route: 065
  7. GENTAMICIN [Concomitant]
     Indication: PSEUDOMONAS INFECTION
     Route: 042
  8. GENTAMICIN [Concomitant]
     Indication: BACTERAEMIA
     Route: 042
  9. VANCOMYCIN [Concomitant]
     Indication: PSEUDOMONAS INFECTION
     Route: 065
  10. VANCOMYCIN [Concomitant]
     Indication: BACTERAEMIA
     Route: 065

REACTIONS (2)
  - DEATH [None]
  - DRUG INEFFECTIVE [None]
